FAERS Safety Report 18411073 (Version 1)
Quarter: 2020Q4

REPORT INFORMATION
  Report Type: Spontaneous
  Country: IN (occurrence: IN)
  Receive Date: 20201021
  Receipt Date: 20201021
  Transmission Date: 20210114
  Serious: Yes (Hospitalization, Other)
  Sender: FDA-Public Use
  Company Number: IN-MICRO LABS LIMITED-ML2020-03098

PATIENT
  Age: 77 Year
  Sex: Female

DRUGS (5)
  1. MEROPENEM. [Suspect]
     Active Substance: MEROPENEM
  2. PIPERACILLIN/TAZOBACTAM [Suspect]
     Active Substance: PIPERACILLIN SODIUM\TAZOBACTAM SODIUM
  3. COLISTIN [Suspect]
     Active Substance: COLISTIN
  4. CLINDAMYCIN. [Suspect]
     Active Substance: CLINDAMYCIN
  5. TEICOPLANIN [Suspect]
     Active Substance: TEICOPLANIN

REACTIONS (2)
  - Diarrhoea [Unknown]
  - Fungaemia [Recovered/Resolved]
